FAERS Safety Report 12438909 (Version 1)
Quarter: 2016Q2

REPORT INFORMATION
  Report Type: Spontaneous
  Country: US (occurrence: US)
  Receive Date: 20160606
  Receipt Date: 20160606
  Transmission Date: 20160815
  Serious: Yes (Other)
  Sender: FDA-Public Use
  Company Number: US-DSJP-DSU-2015-131713

PATIENT
  Sex: Male
  Weight: 81.63 kg

DRUGS (1)
  1. BENICAR [Suspect]
     Active Substance: OLMESARTAN MEDOXOMIL
     Indication: HYPERTENSION
     Dosage: 20 MG, QD
     Route: 048
     Dates: start: 2008, end: 2012

REACTIONS (4)
  - Constipation [Unknown]
  - Malabsorption [Unknown]
  - Haematochezia [Not Recovered/Not Resolved]
  - Acute kidney injury [Unknown]
